FAERS Safety Report 16090904 (Version 2)
Quarter: 2019Q2

REPORT INFORMATION
  Report Type: Spontaneous
  Country: NL (occurrence: NL)
  Receive Date: 20190319
  Receipt Date: 20190402
  Transmission Date: 20190711
  Serious: Yes (Other)
  Sender: FDA-Public Use
  Company Number: NL-PFIZER INC-2019113186

PATIENT
  Age: 69 Year
  Sex: Female
  Weight: 54.1 kg

DRUGS (18)
  1. DIVISUN [Concomitant]
     Dosage: 800 IU, 1X/DAY
  2. BISOPROLOL [Concomitant]
     Active Substance: BISOPROLOL
     Dosage: 7.5 MG, 1X/DAY
  3. LIVOCAB [Concomitant]
     Dosage: 1 DF (0.5 MG/ML), 4X/DAY
  4. DEPO-MEDROL [Suspect]
     Active Substance: METHYLPREDNISOLONE ACETATE
     Indication: MULTIPLE SCLEROSIS
     Dosage: 1000 MG, MONTHLY
     Route: 050
     Dates: start: 2006
  5. CETIRIZINE [Concomitant]
     Active Substance: CETIRIZINE HYDROCHLORIDE
     Dosage: 10 MG, 1X/DAY
  6. MIRTAZAPIN [Concomitant]
     Active Substance: MIRTAZAPINE
     Dosage: 30 MG, 1X/DAY
     Route: 042
  7. LORMETAZEPAM [Concomitant]
     Active Substance: LORMETAZEPAM
     Dosage: 2 MG, 1X/DAY AS NEEDED
  8. PARACETAMOL [Concomitant]
     Active Substance: ACETAMINOPHEN
     Dosage: 1000 MG, 1X/DAY AS NEEDED
  9. CODEINE [Concomitant]
     Active Substance: CODEINE
     Dosage: 20 MG, 1X/DAY AS NEEDED
  10. OMEPRAZOLE. [Concomitant]
     Active Substance: OMEPRAZOLE
     Dosage: 20 MG, 2X/DAY
  11. DICLOFENAC NA [Concomitant]
     Active Substance: DICLOFENAC SODIUM
     Dosage: 50 MG, 1X/DAY AS NEEDED
  12. SYMMETREL [Concomitant]
     Active Substance: AMANTADINE HYDROCHLORIDE
     Dosage: 100 MG, 2X/DAY
  13. SERETIDE [Concomitant]
     Active Substance: FLUTICASONE PROPIONATE\SALMETEROL XINAFOATE
     Dosage: 2 DF, 2X/DAY
  14. RIVOTRIL [Concomitant]
     Active Substance: CLONAZEPAM
     Dosage: 0.5 MG, 2X/DAY
  15. HYDROCORTISON ACETATE [Concomitant]
     Dosage: 1 DF, 1X/DAY
  16. SANDOMIGRAN [Concomitant]
     Active Substance: PIZOTYLINE
     Dosage: 1.5 MG, 1X/DAY
  17. PROLIA [Concomitant]
     Active Substance: DENOSUMAB
     Dosage: 1 DF (60 MG/ML), EVERY 6 MONTHS
  18. NASONEX [Concomitant]
     Active Substance: MOMETASONE FUROATE
     Dosage: 2 DF, 1X/DAY

REACTIONS (1)
  - Hypogammaglobulinaemia [Not Recovered/Not Resolved]

NARRATIVE: CASE EVENT DATE: 20181106
